FAERS Safety Report 17753170 (Version 2)
Quarter: 2020Q4

REPORT INFORMATION
  Report Type: Report from Study
  Country: None (occurrence: US)
  Receive Date: 20200506
  Receipt Date: 20201210
  Transmission Date: 20210113
  Serious: Yes (Other)
  Sender: FDA-Public Use
  Company Number: US-ABBVIE-17K-163-3073629-00

PATIENT
  Sex: Male

DRUGS (10)
  1. IMBRUVICA [Suspect]
     Active Substance: IBRUTINIB
     Dosage: 420 MG, QD
     Route: 048
  2. ADVIL [Concomitant]
     Active Substance: IBUPROFEN
     Indication: PRODUCT USED FOR UNKNOWN INDICATION
     Dosage: UNK, PRN
  3. MULTIVITAMIN [Concomitant]
     Active Substance: VITAMINS
     Indication: PRODUCT USED FOR UNKNOWN INDICATION
  4. IMBRUVICA [Suspect]
     Active Substance: IBRUTINIB
     Route: 048
     Dates: start: 20150901, end: 20180331
  5. PROBIOTIC [Concomitant]
     Active Substance: PROBIOTICS NOS
     Indication: PRODUCT USED FOR UNKNOWN INDICATION
  6. CLARITIN [Concomitant]
     Active Substance: LORATADINE
     Indication: PRODUCT USED FOR UNKNOWN INDICATION
  7. CENTRUM [Concomitant]
     Active Substance: VITAMINS
     Indication: PRODUCT USED FOR UNKNOWN INDICATION
  8. IMBRUVICA [Suspect]
     Active Substance: IBRUTINIB
     Indication: CHRONIC LYMPHOCYTIC LEUKAEMIA
     Dosage: 420 MG, QD
     Route: 048
     Dates: start: 20150901, end: 201609
  9. IMBRUVICA [Suspect]
     Active Substance: IBRUTINIB
     Indication: CHRONIC LYMPHOCYTIC LEUKAEMIA
     Route: 048
     Dates: start: 20180401
  10. IMBRUVICA [Suspect]
     Active Substance: IBRUTINIB
     Route: 048

REACTIONS (15)
  - Lymphocyte count increased [Unknown]
  - Blood glucose increased [Unknown]
  - Pain [Unknown]
  - Blood count abnormal [Unknown]
  - Neutrophil count abnormal [Recovering/Resolving]
  - Memory impairment [Recovered/Resolved]
  - Blood cholesterol increased [Recovering/Resolving]
  - Exposure to SARS-CoV-2 [Unknown]
  - White blood cell count decreased [Recovering/Resolving]
  - Dyspnoea [Unknown]
  - Type 2 diabetes mellitus [Recovering/Resolving]
  - Brain neoplasm benign [Recovered/Resolved]
  - Onychomycosis [Unknown]
  - Product dose omission issue [Unknown]
  - Muscle injury [Recovering/Resolving]

NARRATIVE: CASE EVENT DATE: 2016
